FAERS Safety Report 7240371-4 (Version None)
Quarter: 2011Q1

REPORT INFORMATION
  Report Type: 
  Country: None (occurrence: None)
  Receive Date: 20110119
  Receipt Date: 20110119
  Transmission Date: 20110831
  Serious: Yes (Life-Threatening, Hospitalization)
  Sender: FDA-Public Use
  Company Number: None

PATIENT
  Age: 16 Year
  Sex: Female
  Weight: 72.5755 kg

DRUGS (2)
  1. OCELLA [Suspect]
     Indication: OVARIAN CYST
     Dates: start: 20100301, end: 20110109
  2. OCELLA [Suspect]
     Indication: MENSTRUATION IRREGULAR
     Dates: start: 20100301, end: 20110109

REACTIONS (2)
  - DEEP VEIN THROMBOSIS [None]
  - PULMONARY EMBOLISM [None]
